FAERS Safety Report 8756043 (Version 2)
Quarter: 2012Q4

REPORT INFORMATION
  Report Type: Spontaneous
  Country: US (occurrence: None)
  Receive Date: 20120816
  Receipt Date: 20120822
  Transmission Date: 20130627
  Serious: Yes (Other)
  Sender: FDA-Public Use
  Company Number: ADR-2012-01429

PATIENT
  Sex: Male

DRUGS (1)
  1. LIORESAL [Suspect]
     Indication: PAIN

REACTIONS (5)
  - Blindness transient [None]
  - Overdose [None]
  - Posterior reversible encephalopathy syndrome [None]
  - Contrast media reaction [None]
  - Wrong technique in drug usage process [None]
